FAERS Safety Report 14752820 (Version 1)
Quarter: 2018Q2

REPORT INFORMATION
  Report Type: Spontaneous
  Country: IT (occurrence: IT)
  Receive Date: 20180412
  Receipt Date: 20180412
  Transmission Date: 20180711
  Serious: Yes (Hospitalization)
  Sender: FDA-Public Use
  Company Number: IT-SA-2018SA101333

PATIENT
  Age: 54 Year
  Sex: Male

DRUGS (18)
  1. METHYLPREDNISOLONE. [Suspect]
     Active Substance: METHYLPREDNISOLONE
     Indication: LIMBIC ENCEPHALITIS
     Dosage: FOR 5 DAYS
     Route: 042
  2. OXALIPLATIN. [Suspect]
     Active Substance: OXALIPLATIN
     Indication: COLON CANCER
     Route: 065
  3. OXALIPLATIN. [Suspect]
     Active Substance: OXALIPLATIN
     Indication: COLON CANCER
     Route: 065
  4. IRINOTECAN [Concomitant]
     Active Substance: IRINOTECAN
     Indication: COLON CANCER
     Dates: start: 20170223
  5. OXALIPLATIN. [Suspect]
     Active Substance: OXALIPLATIN
     Indication: COLON CANCER
     Route: 065
     Dates: start: 20170223
  6. LEUCOVORIN. [Suspect]
     Active Substance: LEUCOVORIN
     Indication: COLON CANCER
     Route: 065
     Dates: start: 20170223
  7. PREDNISONE. [Suspect]
     Active Substance: PREDNISONE
     Indication: IMMUNOSUPPRESSANT DRUG THERAPY
     Route: 048
  8. LEUCOVORIN. [Suspect]
     Active Substance: LEUCOVORIN
     Indication: COLON CANCER
     Route: 065
  9. METHYLPREDNISOLONE. [Suspect]
     Active Substance: METHYLPREDNISOLONE
     Indication: IMMUNOSUPPRESSANT DRUG THERAPY
     Dosage: FOR 5 DAYS
     Route: 042
  10. FLUOROURACIL. [Suspect]
     Active Substance: FLUOROURACIL
     Indication: COLON CANCER
     Route: 042
  11. BEVACIZUMAB. [Suspect]
     Active Substance: BEVACIZUMAB
     Indication: COLON CANCER
     Dosage: 5 MG/KG I.V. DAY 1, EVERY 14 DAYS
     Route: 042
     Dates: start: 20170423
  12. VITAMIN D [Concomitant]
     Active Substance: CHOLECALCIFEROL
     Indication: LUMBAR VERTEBRAL FRACTURE
     Dates: start: 201702
  13. LEUCOVORIN. [Suspect]
     Active Substance: LEUCOVORIN
     Indication: COLON CANCER
     Route: 065
  14. DENOSUMAB [Concomitant]
     Active Substance: DENOSUMAB
     Indication: LUMBAR VERTEBRAL FRACTURE
     Dates: start: 201702
  15. PREDNISONE. [Suspect]
     Active Substance: PREDNISONE
     Indication: LIMBIC ENCEPHALITIS
     Route: 048
  16. FLUOROURACIL. [Suspect]
     Active Substance: FLUOROURACIL
     Indication: COLON CANCER
     Route: 042
     Dates: start: 20170423
  17. CALCIUM [Concomitant]
     Active Substance: CALCIUM
     Indication: LUMBAR VERTEBRAL FRACTURE
     Dates: start: 201702
  18. FLUOROURACIL. [Suspect]
     Active Substance: FLUOROURACIL
     Indication: COLON CANCER
     Route: 042

REACTIONS (15)
  - Mental status changes [Unknown]
  - Disorientation [Recovering/Resolving]
  - Hallucination [Unknown]
  - Lethargy [Unknown]
  - Sleep disorder [Unknown]
  - Depressed level of consciousness [Unknown]
  - Somnolence [Not Recovered/Not Resolved]
  - Psychomotor hyperactivity [Unknown]
  - Speech disorder [Recovering/Resolving]
  - Bradykinesia [Unknown]
  - Amnesia [Unknown]
  - Cognitive disorder [Not Recovered/Not Resolved]
  - Body temperature increased [Unknown]
  - Therapeutic response decreased [Unknown]
  - Limbic encephalitis [Unknown]

NARRATIVE: CASE EVENT DATE: 20170403
